FAERS Safety Report 4991123-7 (Version None)
Quarter: 2006Q2

REPORT INFORMATION
  Report Type: 
  Country: None (occurrence: None)
  Receive Date: 20060428
  Receipt Date: 20060420
  Transmission Date: 20061013
  Serious: Yes (Death, Other)
  Sender: FDA-Public Use
  Company Number: GB200604000862

PATIENT
  Age: 43 Year
  Sex: Male
  Weight: 95 kg

DRUGS (9)
  1. CYMBALTA [Suspect]
     Indication: DEPRESSION
     Dosage: SEE IMAGE
     Route: 048
     Dates: start: 20060223, end: 20060302
  2. CYMBALTA [Suspect]
     Indication: DEPRESSION
     Dosage: SEE IMAGE
     Route: 048
     Dates: start: 20060302
  3. RISPERDAL /SWE/ (RISPERIDONE) [Concomitant]
  4. GAMANIL (LOFEPRAMINE HYDROCHLORIDE) [Concomitant]
  5. LITHIUM CARBONATE [Concomitant]
  6. BECLOMETASONE (BECLOMETHASONE) [Concomitant]
  7. SUXAMETHONIUM (SUXAMETHONIUM) [Concomitant]
  8. PROPOFOL [Concomitant]
  9. ETOMIDATE [Concomitant]

REACTIONS (4)
  - APATHY [None]
  - BRADYCARDIA [None]
  - COMPLETED SUICIDE [None]
  - INJURY ASPHYXIATION [None]
